FAERS Safety Report 22220349 (Version 1)
Quarter: 2023Q2

REPORT INFORMATION
  Report Type: Report from Study
  Country: US (occurrence: US)
  Receive Date: 20230417
  Receipt Date: 20230417
  Transmission Date: 20230721
  Serious: No
  Sender: FDA-Public Use
  Company Number: US-INCYTE CORPORATION-2023IN002489

PATIENT

DRUGS (3)
  1. JAKAFI [Suspect]
     Active Substance: RUXOLITINIB
     Indication: Myelofibrosis
     Dosage: 5 MILLIGRAM, QHS
     Route: 048
     Dates: start: 20190425, end: 20230228
  2. JAKAFI [Suspect]
     Active Substance: RUXOLITINIB
     Dosage: 5MG 1 BY MOUTH TWICE DAILY TUESDAY, THURSDAY, SATURDAY, SUNDAY
     Route: 048
  3. JAKAFI [Suspect]
     Active Substance: RUXOLITINIB
     Dosage: 10MG ONE BY MOUTH TWICE DAILY MONDAY, WEDNESDAY, FRIDAY
     Route: 048

REACTIONS (4)
  - Full blood count abnormal [Unknown]
  - Full blood count decreased [Unknown]
  - Splenomegaly [Unknown]
  - Abdominal pain upper [Unknown]
